FAERS Safety Report 8900155 (Version 1)
Quarter: 2012Q4

REPORT INFORMATION
  Report Type: 
  Country: ES (occurrence: ES)
  Receive Date: 20121109
  Receipt Date: 20121109
  Transmission Date: 20130627
  Serious: Yes (Other)
  Sender: FDA-Public Use
  Company Number: PHHY2012ES102419

PATIENT
  Age: 72 Year
  Sex: Female

DRUGS (2)
  1. ZOLEDRONIC ACID [Suspect]
     Dosage: 5 mg, per year
     Dates: start: 200905
  2. ZOLEDRONIC ACID [Suspect]
     Dosage: 4 mg, per three month

REACTIONS (4)
  - Breast cancer [Unknown]
  - Spinal fracture [Unknown]
  - Femoral neck fracture [Unknown]
  - Femur fracture [Unknown]
